FAERS Safety Report 16876765 (Version 1)
Quarter: 2019Q4

REPORT INFORMATION
  Report Type: Spontaneous
  Country: US (occurrence: US)
  Receive Date: 20190807
  Receipt Date: 20190807
  Transmission Date: 20200122
  Serious: No
  Sender: FDA-Public Use
  Company Number: None

PATIENT

DRUGS (2)
  1. PHENDIMETRAZINE 35MG [Suspect]
     Active Substance: PHENDIMETRAZINE
     Route: 048
  2. PHENTERMINE HCL [Suspect]
     Active Substance: PHENTERMINE HYDROCHLORIDE
     Route: 048

REACTIONS (1)
  - Product dispensing error [None]
